FAERS Safety Report 16139214 (Version 1)
Quarter: 2019Q1

REPORT INFORMATION
  Report Type: Spontaneous
  Country: US (occurrence: US)
  Receive Date: 20190227
  Receipt Date: 20190227
  Transmission Date: 20190418
  Serious: No
  Sender: FDA-Public Use
  Company Number: None

PATIENT
  Age: 69 Year
  Sex: Female

DRUGS (1)
  1. AUSTEDO [Suspect]
     Active Substance: DEUTETRABENAZINE
     Dates: start: 201901

REACTIONS (4)
  - Tremor [None]
  - Liver disorder [None]
  - Gastric disorder [None]
  - Confusional state [None]

NARRATIVE: CASE EVENT DATE: 20190227
